FAERS Safety Report 7859464-3 (Version None)
Quarter: 2011Q4

REPORT INFORMATION
  Report Type: 
  Country: None (occurrence: None)
  Receive Date: 20111027
  Receipt Date: 20111019
  Transmission Date: 20120403
  Serious: Yes (Hospitalization)
  Sender: FDA-Public Use
  Company Number: US-GILEAD-2011-0045137

PATIENT

DRUGS (2)
  1. TYVASO [Concomitant]
  2. LETAIRIS [Suspect]
     Indication: PORTOPULMONARY HYPERTENSION
     Dosage: 5 MG, UNK
     Route: 048

REACTIONS (5)
  - DIZZINESS [None]
  - NAUSEA [None]
  - HEADACHE [None]
  - DIARRHOEA [None]
  - MYOCARDIAL INFARCTION [None]
